FAERS Safety Report 8518212-4 (Version None)
Quarter: 2012Q3

REPORT INFORMATION
  Report Type: 
  Country: None (occurrence: None)
  Receive Date: 20120718
  Receipt Date: 20111109
  Transmission Date: 20120928
  Serious: No
  Sender: FDA-Public Use
  Company Number: US-BRISTOL-MYERS SQUIBB COMPANY-16221962

PATIENT
  Age: 79 Year
  Sex: Female
  Weight: 60 kg

DRUGS (3)
  1. COUMADIN [Interacting]
     Indication: THROMBOSIS
     Dosage: STOPPED(3.5MTHS,REST 1DF:2.5MG(6DAYS/WK)+5MG ON MON PRES NO: 677369 EXP DT:2 REFILLS UNTIL 19JN12
     Dates: start: 20100601
  2. VALIUM [Suspect]
  3. NEXIUM [Interacting]

REACTIONS (3)
  - SOMNOLENCE [None]
  - DRUG INTERACTION [None]
  - BLADDER DISORDER [None]
